FAERS Safety Report 7460776-6 (Version None)
Quarter: 2011Q2

REPORT INFORMATION
  Report Type: 
  Country: None (occurrence: None)
  Receive Date: 20110505
  Receipt Date: 20110427
  Transmission Date: 20111010
  Serious: Yes (Hospitalization)
  Sender: FDA-Public Use
  Company Number: PHHY2011FR30207

PATIENT
  Age: 29 Year
  Sex: Female

DRUGS (6)
  1. VALPROATE SODIUM [Suspect]
     Dosage: 1000 MG/DAY
  2. VALPROATE SODIUM [Suspect]
     Dosage: 125 MG/DAY
  3. CARBAMAZEPINE [Suspect]
     Dosage: 800MG/DAY
  4. VALPROATE SODIUM [Suspect]
     Indication: GRAND MAL CONVULSION
     Dosage: 750 MG/DAY
  5. VALPROATE SODIUM [Suspect]
     Dosage: 250 MG/DAY
  6. CARBAMAZEPINE [Suspect]
     Indication: CONVULSION
     Dosage: 600MG/ DAY

REACTIONS (3)
  - CONFUSIONAL STATE [None]
  - PETIT MAL EPILEPSY [None]
  - WEIGHT INCREASED [None]
